FAERS Safety Report 24383894 (Version 3)
Quarter: 2025Q2

REPORT INFORMATION
  Report Type: Spontaneous
  Country: US (occurrence: US)
  Receive Date: 20241001
  Receipt Date: 20250409
  Transmission Date: 20250716
  Serious: No
  Sender: SANOFI AVENTIS
  Company Number: US-SA-2024SA278344

PATIENT
  Sex: Female
  Weight: 45 kg

DRUGS (5)
  1. DUPIXENT [Suspect]
     Active Substance: DUPILUMAB
     Indication: Osteoporosis
     Dosage: 300 MG, QOW
     Route: 058
  2. DUPIXENT [Suspect]
     Active Substance: DUPILUMAB
     Indication: Dermatitis atopic
  3. DUPIXENT [Suspect]
     Active Substance: DUPILUMAB
     Indication: Ankylosing spondylitis
  4. COSENTYX [Concomitant]
     Active Substance: SECUKINUMAB
  5. PROLIA [Concomitant]
     Active Substance: DENOSUMAB

REACTIONS (8)
  - COVID-19 [Unknown]
  - Blister [Unknown]
  - B-lymphocyte count abnormal [Unknown]
  - Illness [Unknown]
  - Malaise [Unknown]
  - Hypersensitivity [Unknown]
  - Product use in unapproved indication [Unknown]
  - Surgery [Unknown]
